FAERS Safety Report 20710368 (Version 1)
Quarter: 2022Q2

REPORT INFORMATION
  Report Type: Other
  Country: JP (occurrence: None)
  Receive Date: 20220414
  Receipt Date: 20220414
  Transmission Date: 20220721
  Serious: Yes (Other)
  Sender: FDA-Public Use
  Company Number: JP-ROCHE-3076657

PATIENT

DRUGS (3)
  1. VALGANCICLOVIR [Suspect]
     Active Substance: VALGANCICLOVIR
     Indication: Cytomegalovirus infection
     Dosage: EITHER 450 MG OR 900 MG
     Route: 048
  2. MYCOPHENOLATE MOFETIL [Suspect]
     Active Substance: MYCOPHENOLATE MOFETIL
     Indication: Prophylaxis against transplant rejection
     Dosage: INITIAL DOSE OF 1.5-2.0 G/D DIVIDED INTO TWO DOSES
     Route: 065
  3. TACROLIMUS [Suspect]
     Active Substance: TACROLIMUS
     Indication: Prophylaxis against transplant rejection
     Dosage: INITIATED AT A DOSE OF 1 MG/D DIVIDED INTO TWO DOSES (0.5 MG), DURING THE FIRST YEAR POST-HTX WERE 9
     Route: 065

REACTIONS (3)
  - Cytomegalovirus infection [Unknown]
  - Neutropenia [Unknown]
  - Off label use [Unknown]
